FAERS Safety Report 19467720 (Version 1)
Quarter: 2021Q2

REPORT INFORMATION
  Report Type: Spontaneous
  Country: US (occurrence: US)
  Receive Date: 20210628
  Receipt Date: 20210628
  Transmission Date: 20210717
  Serious: Yes (Hospitalization)
  Sender: FDA-Public Use
  Company Number: None

PATIENT
  Sex: Female
  Weight: 43.54 kg

DRUGS (11)
  1. TRESIBA [Concomitant]
     Active Substance: INSULIN DEGLUDEC
  2. FERROUS SULFATE. [Concomitant]
     Active Substance: FERROUS SULFATE
  3. ONDANSETRON [Concomitant]
     Active Substance: ONDANSETRON
  4. PROTONIX [Concomitant]
     Active Substance: PANTOPRAZOLE SODIUM
  5. ERGOCALCIFEROL. [Concomitant]
     Active Substance: ERGOCALCIFEROL
  6. AFINITOR [Concomitant]
     Active Substance: EVEROLIMUS
  7. LEVOTHYROXINE. [Concomitant]
     Active Substance: LEVOTHYROXINE
  8. CALCIUM CARBONATE?VITAMIN D [Concomitant]
     Active Substance: CALCIUM CARBONATE\VITAMIN D
  9. AFINITOR [Suspect]
     Active Substance: EVEROLIMUS
     Indication: ANAEMIA
     Route: 048
  10. NOVOLOG [Concomitant]
     Active Substance: INSULIN ASPART
  11. SANDOSTATIN LAR DEPOT [Concomitant]
     Active Substance: OCTREOTIDE ACETATE

REACTIONS (1)
  - Hospitalisation [None]
